FAERS Safety Report 15589572 (Version 1)
Quarter: 2018Q4

REPORT INFORMATION
  Report Type: Spontaneous
  Country: GB (occurrence: GB)
  Receive Date: 20181106
  Receipt Date: 20181106
  Transmission Date: 20190205
  Serious: Yes (Other)
  Sender: FDA-Public Use
  Company Number: GB-ACCORD-091040

PATIENT
  Age: 22 Year
  Sex: Male
  Weight: 77 kg

DRUGS (3)
  1. METHOTREXATE. [Suspect]
     Active Substance: METHOTREXATE
     Indication: CROHN^S DISEASE
     Dates: start: 20170826
  2. PREDNISOLONE. [Concomitant]
     Active Substance: PREDNISOLONE
  3. ADALIMUMAB [Concomitant]
     Active Substance: ADALIMUMAB
     Dates: end: 20170825

REACTIONS (2)
  - Syncope [Unknown]
  - Headache [Unknown]
